FAERS Safety Report 23348882 (Version 2)
Quarter: 2025Q2

REPORT INFORMATION
  Report Type: Spontaneous
  Country: US (occurrence: US)
  Receive Date: 20231229
  Receipt Date: 20250503
  Transmission Date: 20250717
  Serious: Yes (Other)
  Sender: AUROBINDO
  Company Number: US-AUROBINDO-AUR-APL-2023-080764

PATIENT
  Age: 31 Year
  Sex: Female

DRUGS (1)
  1. AMPHETAMINE SULFATE [Suspect]
     Active Substance: AMPHETAMINE SULFATE
     Indication: Product used for unknown indication
     Route: 065

REACTIONS (7)
  - Metabolic acidosis [Unknown]
  - Diabetic ketoacidosis [Unknown]
  - Drug abuse [Unknown]
  - Metabolic alkalosis [Unknown]
  - Respiratory acidosis [Unknown]
  - Hyperosmolar state [Unknown]
  - Polyuria [Unknown]
